FAERS Safety Report 21557397 (Version 2)
Quarter: 2022Q4

REPORT INFORMATION
  Report Type: Report from Study
  Country: AR (occurrence: AR)
  Receive Date: 20221105
  Receipt Date: 20221114
  Transmission Date: 20230112
  Serious: Yes (Death, Hospitalization, Other)
  Sender: FDA-Public Use
  Company Number: AR-002147023-NVSC2022AR249397

PATIENT
  Sex: Male

DRUGS (1)
  1. EXFORGE [Suspect]
     Active Substance: AMLODIPINE BESYLATE\VALSARTAN
     Indication: Hypertension
     Dosage: 1 OF 160-5 MG, QD (START DATE: DURING 8 YEARS) (STOP DATE: 7 YEARS AGO)
     Route: 048

REACTIONS (7)
  - Cerebrovascular accident [Fatal]
  - Haematoma [Unknown]
  - Fall [Unknown]
  - Head injury [Unknown]
  - Peripheral swelling [Unknown]
  - Headache [Unknown]
  - Joint swelling [Unknown]
